FAERS Safety Report 17283030 (Version 2)
Quarter: 2020Q1

REPORT INFORMATION
  Report Type: Spontaneous
  Country: DE (occurrence: DE)
  Receive Date: 20200117
  Receipt Date: 20200312
  Transmission Date: 20200409
  Serious: Yes (Death, Life-Threatening, Hospitalization, Other)
  Sender: FDA-Public Use
  Company Number: DE-IBIGEN-2020.08119

PATIENT
  Age: 72 Year
  Sex: Female
  Weight: 85 kg

DRUGS (16)
  1. PIPERACILLIN AND TAZOBACTAM [Suspect]
     Active Substance: PIPERACILLIN SODIUM\TAZOBACTAM SODIUM
     Indication: URINARY TRACT INFECTION
     Route: 042
     Dates: start: 20191228, end: 20200107
  2. ORFIRIL [Concomitant]
     Active Substance: VALPROATE SODIUM
     Dosage: 1-0-1
  3. CANDESARTAN. [Concomitant]
     Active Substance: CANDESARTAN
     Dosage: 1-0-1
  4. FERRO SANOL [Concomitant]
     Active Substance: FERROUS GLYCINE SULFATE
     Dosage: 1-0-1
  5. QUETIAPIN [Concomitant]
     Active Substance: QUETIAPINE
     Dosage: 1-1-0
  6. TAVOR [Concomitant]
     Dosage: AS REQUIRED
  7. NOVALGIN [Concomitant]
     Dosage: AS REQUIRED
  8. DIPIPERON TABLETS [Concomitant]
     Dosage: 20-40-20
  9. TAVOR [Concomitant]
     Dosage: 1-0-1
  10. CARMEN [Concomitant]
     Dosage: 1-0-0
  11. VALPROATE [Concomitant]
     Active Substance: VALPROIC ACID
     Dosage: 1-0-1
  12. PANTOPRAZOL [Concomitant]
     Active Substance: PANTOPRAZOLE SODIUM
     Dosage: 1-0-0
  13. METFORMIN [Concomitant]
     Active Substance: METFORMIN HYDROCHLORIDE
     Dosage: 1-0-1
  14. RISPERIDON [Concomitant]
     Active Substance: RISPERIDONE
     Dosage: 2-0-1
  15. AKENITON [Concomitant]
     Dosage: 1-0-0
  16. FURO [Concomitant]
     Active Substance: FUROSEMIDE
     Dosage: 1-1-0

REACTIONS (1)
  - Diabetes insipidus [Fatal]

NARRATIVE: CASE EVENT DATE: 20200102
